FAERS Safety Report 15093333 (Version 3)
Quarter: 2018Q3

REPORT INFORMATION
  Report Type: Spontaneous
  Country: IT (occurrence: IT)
  Receive Date: 20180629
  Receipt Date: 20180817
  Transmission Date: 20181010
  Serious: Yes (Life-Threatening)
  Sender: FDA-Public Use
  Company Number: IT-TEVA-2018-IT-916758

PATIENT
  Age: 60 Year
  Sex: Male

DRUGS (1)
  1. DICLOFENAC SODIUM. [Suspect]
     Active Substance: DICLOFENAC SODIUM
     Indication: LUMBAR HERNIA
     Route: 030
     Dates: start: 20171115, end: 20171115

REACTIONS (6)
  - Hypotension [Recovered/Resolved]
  - Vomiting [Recovered/Resolved]
  - Angioedema [Recovered/Resolved]
  - Bronchospasm [Recovered/Resolved]
  - Laryngeal oedema [Recovered/Resolved]
  - Anaphylactic shock [Recovered/Resolved]

NARRATIVE: CASE EVENT DATE: 20171115
